FAERS Safety Report 7319818-0 (Version None)
Quarter: 2011Q1

REPORT INFORMATION
  Report Type: 
  Country: None (occurrence: None)
  Receive Date: 20110228
  Receipt Date: 20101007
  Transmission Date: 20110831
  Serious: Yes (Other)
  Sender: FDA-Public Use
  Company Number: A0885454A

PATIENT
  Sex: Female

DRUGS (3)
  1. LITHIUM [Concomitant]
  2. GEODON [Concomitant]
  3. LAMICTAL [Suspect]
     Indication: BIPOLAR DISORDER
     Dosage: 100MG PER DAY
     Route: 048

REACTIONS (3)
  - TREMOR [None]
  - HEAD TITUBATION [None]
  - CONVULSION [None]
